FAERS Safety Report 7229448-7 (Version None)
Quarter: 2011Q1

REPORT INFORMATION
  Report Type: 
  Country: None (occurrence: None)
  Receive Date: 20110117
  Receipt Date: 20110112
  Transmission Date: 20110831
  Serious: Yes (Other)
  Sender: FDA-Public Use
  Company Number: B0693756A

PATIENT
  Age: 78 Year
  Sex: Female

DRUGS (1)
  1. AUGMENTIN [Suspect]
     Indication: PNEUMONIA BACTERIAL
     Dosage: 2.2G THREE TIMES PER DAY
     Route: 042
     Dates: start: 20101212, end: 20101219

REACTIONS (2)
  - PYREXIA [None]
  - HEPATIC ENZYME INCREASED [None]
